FAERS Safety Report 4444204-0 (Version None)
Quarter: 2004Q3

REPORT INFORMATION
  Report Type: 
  Country: None (occurrence: None)
  Receive Date: 20040812
  Receipt Date: 20040510
  Transmission Date: 20050211
  Serious: Yes (Hospitalization)
  Sender: FDA-Public Use
  Company Number: USA040362052

PATIENT
  Age: 71 Year
  Sex: Female

DRUGS (3)
  1. HUMULIN L [Suspect]
  2. REGULAR ILETIN II (PORK) [Suspect]
     Dosage: 20 U DAY
  3. LENTE ILETIN II (PORK) [Suspect]
     Dosage: 19 U DAY

REACTIONS (4)
  - BLOOD GLUCOSE INCREASED [None]
  - DRUG INTOLERANCE [None]
  - FEELING ABNORMAL [None]
  - NEUROPATHY [None]
